FAERS Safety Report 13005600 (Version 1)
Quarter: 2016Q4

REPORT INFORMATION
  Report Type: Spontaneous
  Country: US (occurrence: US)
  Receive Date: 20161207
  Receipt Date: 20161207
  Transmission Date: 20170207
  Serious: Yes (Hospitalization)
  Sender: FDA-Public Use
  Company Number: US-JNJFOC-20161103373

PATIENT
  Age: 19 Year
  Sex: Female
  Weight: 78.02 kg

DRUGS (7)
  1. NABUMETONE. [Concomitant]
     Active Substance: NABUMETONE
     Indication: JOINT SWELLING
     Route: 065
     Dates: start: 2014
  2. METHOTREXATE. [Concomitant]
     Active Substance: METHOTREXATE
     Indication: PSORIASIS
     Dosage: 2.5 MG WEEKLY
     Route: 065
     Dates: start: 2014
  3. REMICADE [Suspect]
     Active Substance: INFLIXIMAB
     Indication: ARTHRITIS
     Route: 042
     Dates: start: 201607, end: 2016
  4. REMICADE [Suspect]
     Active Substance: INFLIXIMAB
     Indication: PSORIASIS
     Route: 042
     Dates: start: 20160919, end: 2016
  5. REMICADE [Suspect]
     Active Substance: INFLIXIMAB
     Indication: PSORIASIS
     Route: 042
     Dates: start: 201607, end: 2016
  6. REMICADE [Suspect]
     Active Substance: INFLIXIMAB
     Indication: ARTHRITIS
     Route: 042
     Dates: start: 20160919, end: 2016
  7. FOLIC ACID. [Concomitant]
     Active Substance: FOLIC ACID
     Route: 065
     Dates: start: 2014

REACTIONS (7)
  - Drug effect decreased [Unknown]
  - Back pain [Unknown]
  - Product use issue [Unknown]
  - Infusion related reaction [Unknown]
  - Off label use [Unknown]
  - Joint swelling [Unknown]
  - Vomiting [Recovered/Resolved]

NARRATIVE: CASE EVENT DATE: 2016
